FAERS Safety Report 4640602-0 (Version None)
Quarter: 2005Q2

REPORT INFORMATION
  Report Type: 
  Country: None (occurrence: None)
  Receive Date: 20050419
  Receipt Date: 20050407
  Transmission Date: 20051028
  Serious: Yes (Hospitalization)
  Sender: FDA-Public Use
  Company Number: SP-2005-002136

PATIENT
  Age: 67 Year
  Sex: Male
  Weight: 72 kg

DRUGS (5)
  1. OLMETEC [Suspect]
     Indication: HYPERTENSION
     Dosage: 20 MG QD PO
     Route: 048
     Dates: start: 20041201, end: 20050215
  2. TILDIEM [Concomitant]
  3. MOXON [Concomitant]
  4. SINTROM [Concomitant]
  5. BUMETANIDE [Concomitant]

REACTIONS (1)
  - RASH ERYTHEMATOUS [None]
